FAERS Safety Report 10064471 (Version 2)
Quarter: 2014Q4

REPORT INFORMATION
  Report Type: Spontaneous
  Country: IE (occurrence: IE)
  Receive Date: 20140408
  Receipt Date: 20141001
  Transmission Date: 20150528
  Serious: Yes (Hospitalization, Other)
  Sender: FDA-Public Use
  Company Number: IE-AMGEN-IRLSP2014023643

PATIENT
  Age: 34 Year
  Sex: Female
  Weight: 85.6 kg

DRUGS (2)
  1. PHOSPHORUS [Concomitant]
     Active Substance: PHOSPHORUS
  2. MIMPARA [Suspect]
     Active Substance: CINACALCET HYDROCHLORIDE
     Indication: PRODUCT USED FOR UNKNOWN INDICATION
     Dosage: 30 MG, QD
     Route: 065

REACTIONS (15)
  - Hypocalcaemia [Unknown]
  - Angioedema [Recovered/Resolved]
  - Hypersensitivity [Recovered/Resolved]
  - Acute phase reaction [Recovered/Resolved]
  - Blood parathyroid hormone increased [Unknown]
  - Fibroblast growth factor 23 increased [Unknown]
  - Hypercalcaemia [Unknown]
  - N-telopeptide urine increased [Unknown]
  - Pain [Unknown]
  - Bone density decreased [Unknown]
  - Bone density increased [Unknown]
  - Transaminases increased [Recovered/Resolved]
  - Calcium ionised decreased [Unknown]
  - Myopathy [Recovered/Resolved]
  - Glomerular filtration rate abnormal [Unknown]
